FAERS Safety Report 14751813 (Version 2)
Quarter: 2018Q2

REPORT INFORMATION
  Report Type: Spontaneous
  Country: US (occurrence: US)
  Receive Date: 20180412
  Receipt Date: 20180517
  Transmission Date: 20180711
  Serious: Yes (Other)
  Sender: FDA-Public Use
  Company Number: US-PFIZER INC-2017202904

PATIENT
  Age: 59 Year
  Sex: Female
  Weight: 81 kg

DRUGS (2)
  1. RAPAMUNE [Suspect]
     Active Substance: SIROLIMUS
     Indication: RENAL TRANSPLANT
     Dosage: 1 MG, 3X/DAY
     Route: 048
  2. RAPAMUNE [Suspect]
     Active Substance: SIROLIMUS
     Indication: TRANSPLANT
     Dosage: UNK, 3X/DAY
     Dates: start: 2001

REACTIONS (4)
  - Poor quality drug administered [Unknown]
  - Cataract [Unknown]
  - Cerebrovascular accident [Unknown]
  - Product container issue [Unknown]

NARRATIVE: CASE EVENT DATE: 201610
